FAERS Safety Report 21287640 (Version 2)
Quarter: 2022Q3

REPORT INFORMATION
  Report Type: Report from Study
  Country: US (occurrence: US)
  Receive Date: 20220902
  Receipt Date: 20220912
  Transmission Date: 20221026
  Serious: Yes (Other)
  Sender: FDA-Public Use
  Company Number: US-ABBVIE-22K-163-4523822-00

PATIENT
  Age: 40 Year
  Sex: Female
  Weight: 100.79 kg

DRUGS (1)
  1. HUMIRA [Suspect]
     Active Substance: ADALIMUMAB
     Indication: Hidradenitis
     Dosage: CITRATE FREE
     Route: 058
     Dates: start: 20210917, end: 202206

REACTIONS (7)
  - Systemic lupus erythematosus [Not Recovered/Not Resolved]
  - Fear [Unknown]
  - Pain [Recovering/Resolving]
  - Urinary tract infection [Recovered/Resolved]
  - Arthralgia [Recovering/Resolving]
  - Pneumonia [Recovered/Resolved]
  - Confusional state [Unknown]

NARRATIVE: CASE EVENT DATE: 20211201
